FAERS Safety Report 17568759 (Version 2)
Quarter: 2020Q2

REPORT INFORMATION
  Report Type: Spontaneous
  Country: NO (occurrence: NO)
  Receive Date: 20200321
  Receipt Date: 20200428
  Transmission Date: 20200713
  Serious: Yes (Other)
  Sender: FDA-Public Use
  Company Number: NO-AMGEN-NORSP2020036228

PATIENT
  Age: 13 Year
  Sex: Male

DRUGS (4)
  1. IBUX [Concomitant]
     Active Substance: IBUPROFEN
     Indication: BACK PAIN
     Dosage: 400 MG, AS NEEDED, UP TO 3 TIMES DAILY
     Route: 048
     Dates: start: 2019, end: 202001
  2. PARACET [PARACETAMOL] [Concomitant]
     Dosage: 1 GRAM, AS NECESSARY (UP TO 3 TIMES DAILY)
     Route: 048
  3. SOMAC [Concomitant]
     Active Substance: PANTOPRAZOLE SODIUM
     Indication: ABDOMINAL PAIN UPPER
     Dosage: 20 MILLIGRAM
     Route: 048
     Dates: start: 2019, end: 202001
  4. ENBREL [Suspect]
     Active Substance: ETANERCEPT
     Indication: ANKYLOSING SPONDYLITIS
     Dosage: 50 MG, WEEKLY
     Route: 058
     Dates: start: 201509, end: 202001

REACTIONS (3)
  - Weight decreased [Unknown]
  - Inflammatory bowel disease [Unknown]
  - Crohn^s disease [Recovered/Resolved with Sequelae]

NARRATIVE: CASE EVENT DATE: 201908
